FAERS Safety Report 7006249-6 (Version None)
Quarter: 2010Q3

REPORT INFORMATION
  Report Type: 
  Country: None (occurrence: None)
  Receive Date: 20100921
  Receipt Date: 20100824
  Transmission Date: 20110219
  Serious: No
  Sender: FDA-Public Use
  Company Number: US-PFIZER INC-2005037867

PATIENT
  Sex: Male
  Weight: 81.633 kg

DRUGS (6)
  1. VIAGRA [Suspect]
     Indication: ERECTILE DYSFUNCTION
     Dosage: 50 MG, AS NEEDED
     Route: 048
  2. VIAGRA [Suspect]
     Indication: MIGRAINE
  3. ATIVAN [Concomitant]
     Dosage: UNK
     Route: 048
  4. ZANTAC [Concomitant]
     Dosage: UNK
     Route: 048
  5. VALIUM [Concomitant]
     Dosage: UNK
  6. ASPIRIN [Concomitant]
     Dosage: UNK

REACTIONS (3)
  - DYSGEUSIA [None]
  - FLUSHING [None]
  - HEART RATE INCREASED [None]
